FAERS Safety Report 9373811 (Version 1)
Quarter: 2013Q2

REPORT INFORMATION
  Report Type: Spontaneous
  Country: GB (occurrence: GB)
  Receive Date: 20130628
  Receipt Date: 20130628
  Transmission Date: 20140414
  Serious: Yes (Other)
  Sender: FDA-Public Use
  Company Number: PHHY2013GB064023

PATIENT
  Age: 34 Year
  Sex: Male
  Weight: 110.21 kg

DRUGS (3)
  1. AMOXICILLIN [Suspect]
     Indication: INFECTION
     Dosage: 250 MG, TID
     Route: 048
     Dates: start: 20130607, end: 20130611
  2. TESTOSTERONE [Concomitant]
  3. THYROID [Concomitant]

REACTIONS (3)
  - Depression [Recovering/Resolving]
  - Fatigue [Recovering/Resolving]
  - Insomnia [Recovering/Resolving]
